FAERS Safety Report 4356004-0 (Version None)
Quarter: 2004Q2

REPORT INFORMATION
  Report Type: 
  Country: None (occurrence: None)
  Receive Date: 20040505
  Receipt Date: 20040503
  Transmission Date: 20050107
  Serious: Yes (Hospitalization, Other)
  Sender: FDA-Public Use
  Company Number: 200313767BCC

PATIENT
  Age: 78 Year
  Sex: Male

DRUGS (1)
  1. MILK OF MAGNESIA TAB [Suspect]
     Dosage: ONCE

REACTIONS (2)
  - ABDOMINAL INFECTION [None]
  - MEDICATION ERROR [None]
